FAERS Safety Report 7779610-X (Version None)
Quarter: 2011Q3

REPORT INFORMATION
  Report Type: 
  Country: None (occurrence: None)
  Receive Date: 20110927
  Receipt Date: 20110920
  Transmission Date: 20111222
  Serious: Yes (Other)
  Sender: FDA-Public Use
  Company Number: US-NAPPMUNDI-USA-2011-0074838

PATIENT
  Sex: Female

DRUGS (1)
  1. BUTRANS [Suspect]
     Indication: PRODUCT USED FOR UNKNOWN INDICATION
     Dosage: 5 MCG/HR, DAILY
     Dates: start: 20110812

REACTIONS (5)
  - CONFUSIONAL STATE [None]
  - COGNITIVE DISORDER [None]
  - COMMUNICATION DISORDER [None]
  - MALAISE [None]
  - DECREASED APPETITE [None]
